FAERS Safety Report 7914154 (Version 2)
Quarter: 2013Q1

REPORT INFORMATION
  Report Type: Spontaneous
  Country: US (occurrence: US)
  Receive Date: 20110426
  Receipt Date: 20130315
  Transmission Date: 20140127
  Serious: No
  Sender: FDA-Public Use
  Company Number: US-BIOGENIDEC-2011BI014790

PATIENT
  Sex: Male

DRUGS (1)
  1. TYSABRI [Suspect]
     Indication: MULTIPLE SCLEROSIS
     Route: 042
     Dates: start: 20110316

REACTIONS (11)
  - Pain in extremity [Not Recovered/Not Resolved]
  - Balance disorder [Not Recovered/Not Resolved]
  - Cataract operation [Recovered/Resolved]
  - Photosensitivity reaction [Not Recovered/Not Resolved]
  - Blood pressure fluctuation [Recovered/Resolved]
  - Irritability [Recovered/Resolved]
  - Mood swings [Recovered/Resolved]
  - Cardiac disorder [Recovered/Resolved]
  - Eye disorder [Recovered/Resolved]
  - Musculoskeletal disorder [Recovered/Resolved]
  - Malaise [Not Recovered/Not Resolved]
